FAERS Safety Report 4411709-8 (Version None)
Quarter: 2004Q3

REPORT INFORMATION
  Report Type: 
  Country: None (occurrence: None)
  Receive Date: 20040730
  Receipt Date: 20040721
  Transmission Date: 20050211
  Serious: Yes (Hospitalization)
  Sender: FDA-Public Use
  Company Number: JP-BRISTOL-MYERS SQUIBB COMPANY-12652178

PATIENT
  Age: 50 Year
  Sex: Male

DRUGS (7)
  1. PRAVASTATIN SODIUM [Suspect]
     Indication: HYPERLIPIDAEMIA
     Route: 048
     Dates: start: 20000701, end: 20000803
  2. ASPIRIN [Concomitant]
     Dates: end: 20000803
  3. ISOSORBIDE MONONITRATE [Concomitant]
     Dates: end: 20000803
  4. NACKLESS [Concomitant]
     Dates: end: 20000803
  5. RENIVACE [Concomitant]
     Dates: end: 20000803
  6. SERENAMIN [Concomitant]
     Dates: end: 20000803
  7. ALMYLAR [Concomitant]
     Dates: end: 20000803

REACTIONS (3)
  - DEHYDRATION [None]
  - RENAL FAILURE ACUTE [None]
  - RHABDOMYOLYSIS [None]
